FAERS Safety Report 17506889 (Version 1)
Quarter: 2020Q1

REPORT INFORMATION
  Report Type: Spontaneous
  Country: US (occurrence: US)
  Receive Date: 20200305
  Receipt Date: 20200305
  Transmission Date: 20200409
  Serious: No
  Sender: FDA-Public Use
  Company Number: US-ROCHE-2491760

PATIENT
  Age: 38 Year
  Weight: 79.45 kg

DRUGS (1)
  1. XOLAIR [Suspect]
     Active Substance: OMALIZUMAB
     Indication: PRODUCT USED FOR UNKNOWN INDICATION
     Dosage: USUALLY VIA INJECTION, DOSE REDUCED
     Route: 058

REACTIONS (2)
  - Tachycardia [Unknown]
  - Palpitations [Unknown]

NARRATIVE: CASE EVENT DATE: 20181217
